FAERS Safety Report 21990522 (Version 1)
Quarter: 2023Q1

REPORT INFORMATION
  Report Type: Spontaneous
  Country: US (occurrence: None)
  Receive Date: 20230213
  Receipt Date: 20230213
  Transmission Date: 20230417
  Serious: Yes (Other)
  Sender: FDA-Public Use
  Company Number: None

PATIENT
  Age: 46 Year
  Sex: Female
  Weight: 56.25 kg

DRUGS (7)
  1. BUPRENORPHINE [Suspect]
     Active Substance: BUPRENORPHINE
     Indication: Pain management
     Dosage: OTHER QUANTITY : 30 TABLET(S);?FREQUENCY : TWICE A DAY;?
     Route: 060
     Dates: start: 20230209, end: 20230213
  2. CLONAZEPAM [Concomitant]
     Active Substance: CLONAZEPAM
  3. BACLOFEN [Concomitant]
     Active Substance: BACLOFEN
  4. FLEXERIL [Concomitant]
     Active Substance: CYCLOBENZAPRINE HYDROCHLORIDE
  5. VISTARIL [Concomitant]
     Active Substance: HYDROXYZINE PAMOATE
  6. ZOFRAN [Concomitant]
     Active Substance: ONDANSETRON HYDROCHLORIDE
  7. MOTRIN [Concomitant]
     Active Substance: IBUPROFEN

REACTIONS (11)
  - Rash erythematous [None]
  - Constipation [None]
  - Nausea [None]
  - Headache [None]
  - Blepharospasm [None]
  - Dyspnoea [None]
  - Skin burning sensation [None]
  - Hyperhidrosis [None]
  - Fatigue [None]
  - Emotional distress [None]
  - Irritability [None]

NARRATIVE: CASE EVENT DATE: 20230209
